FAERS Safety Report 21243119 (Version 2)
Quarter: 2022Q4

REPORT INFORMATION
  Report Type: Spontaneous
  Country: DE (occurrence: None)
  Receive Date: 20220823
  Receipt Date: 20221125
  Transmission Date: 20230113
  Serious: Yes (Life-Threatening)
  Sender: FDA-Public Use
  Company Number: DE-ROCHE-3164666

PATIENT
  Sex: Male
  Weight: 11.4 kg

DRUGS (3)
  1. EVRYSDI [Suspect]
     Active Substance: RISDIPLAM
     Indication: Spinal muscular atrophy
     Route: 048
     Dates: start: 20220526, end: 20220823
  2. OMEPRAZOLE [Concomitant]
     Active Substance: OMEPRAZOLE
     Dates: start: 2020
  3. MOVICOL [Concomitant]
     Active Substance: POLYETHYLENE GLYCOL 3350\POTASSIUM CHLORIDE\SODIUM BICARBONATE\SODIUM CHLORIDE
     Indication: Constipation
     Dosage: 1/2 PACKAGE (NOS)
     Route: 065
     Dates: start: 2020

REACTIONS (6)
  - Dysphagia [Not Recovered/Not Resolved]
  - Motor dysfunction [Recovering/Resolving]
  - Arthropathy [Not Recovered/Not Resolved]
  - Respiratory disorder [Unknown]
  - Motor dysfunction [Not Recovered/Not Resolved]
  - Vomiting [Recovering/Resolving]

NARRATIVE: CASE EVENT DATE: 20220601
